FAERS Safety Report 7937808-1 (Version None)
Quarter: 2011Q4

REPORT INFORMATION
  Report Type: 
  Country: None (occurrence: None)
  Receive Date: 20111123
  Receipt Date: 20111118
  Transmission Date: 20120403
  Serious: Yes (Other)
  Sender: FDA-Public Use
  Company Number: GB-PFIZER INC-2011282771

PATIENT
  Age: 64 Year
  Sex: Male

DRUGS (2)
  1. VARENICLINE TARTRATE [Suspect]
     Indication: SMOKING CESSATION THERAPY
     Dosage: UNK
     Dates: start: 20111028, end: 20110101
  2. VARENICLINE TARTRATE [Suspect]
     Dosage: 0.5 MG, 1X/DAY
     Dates: start: 20111111, end: 20111101

REACTIONS (10)
  - FEELING COLD [None]
  - CONSTIPATION [None]
  - SOMNOLENCE [None]
  - HYPOAESTHESIA [None]
  - FREQUENT BOWEL MOVEMENTS [None]
  - MEMORY IMPAIRMENT [None]
  - LOSS OF CONTROL OF LEGS [None]
  - FEELING ABNORMAL [None]
  - ABDOMINAL PAIN UPPER [None]
  - ORAL HERPES [None]
